FAERS Safety Report 25595562 (Version 1)
Quarter: 2025Q3

REPORT INFORMATION
  Report Type: Spontaneous
  Country: US (occurrence: US)
  Receive Date: 20250723
  Receipt Date: 20250723
  Transmission Date: 20251020
  Serious: Yes (Other)
  Sender: MYLAN
  Company Number: US-MYLANLABS-2025M1060379

PATIENT
  Age: 3 Year
  Sex: Male

DRUGS (5)
  1. CLONIDINE [Suspect]
     Active Substance: CLONIDINE
     Indication: Insomnia
  2. IRON [Suspect]
     Active Substance: IRON
     Indication: Iron deficiency anaemia
  3. IRON [Suspect]
     Active Substance: IRON
     Indication: Supplementation therapy
  4. HYDROXYZINE [Suspect]
     Active Substance: HYDROXYZINE HYDROCHLORIDE
     Indication: Insomnia
  5. MELATONIN [Suspect]
     Active Substance: MELATONIN
     Indication: Insomnia

REACTIONS (2)
  - Treatment failure [Unknown]
  - Off label use [Unknown]
